FAERS Safety Report 5601227-3 (Version None)
Quarter: 2008Q1

REPORT INFORMATION
  Report Type: 
  Country: None (occurrence: None)
  Receive Date: 20080124
  Receipt Date: 20071108
  Transmission Date: 20080703
  Serious: Yes (Hospitalization, Other)
  Sender: FDA-Public Use
  Company Number: US-PURDUE-USA_2007_0031196

PATIENT
  Age: 72 Year
  Sex: Female
  Weight: 45 kg

DRUGS (5)
  1. OXYCONTIN [Suspect]
     Indication: PAIN
     Dosage: 40 MG, SEE TEXT
     Dates: start: 20000404, end: 20010401
  2. AMBIEN [Concomitant]
     Dosage: 10 MG, UNK
  3. DIAZEPAM [Concomitant]
     Dosage: 5 MG, UNK
  4. HYDROCODONE BITARTRATE [Concomitant]
     Dosage: 10 UNK, UNK
  5. ROXICODONE [Concomitant]
     Dosage: 5 MG, UNK

REACTIONS (8)
  - AMNESIA [None]
  - COMA [None]
  - DEPRESSION [None]
  - DRUG DEPENDENCE [None]
  - DRUG WITHDRAWAL SYNDROME [None]
  - HOMICIDAL IDEATION [None]
  - SUICIDAL IDEATION [None]
  - SUICIDE ATTEMPT [None]
